FAERS Safety Report 5707748-7 (Version None)
Quarter: 2008Q2

REPORT INFORMATION
  Report Type: 
  Country: None (occurrence: None)
  Receive Date: 20080417
  Receipt Date: 20080317
  Transmission Date: 20081010
  Serious: No
  Sender: FDA-Public Use
  Company Number: US-BAYER-200817459NA

PATIENT
  Age: 21 Year
  Sex: Female

DRUGS (3)
  1. MIRENA [Suspect]
     Indication: CONTRACEPTION
     Route: 015
  2. KLONOPIN [Concomitant]
     Indication: BIPOLAR DISORDER
  3. WELLBUTRIN SR [Concomitant]
     Indication: BIPOLAR DISORDER

REACTIONS (2)
  - DEVICE BREAKAGE [None]
  - IUCD COMPLICATION [None]
